FAERS Safety Report 5262911-7 (Version None)
Quarter: 2007Q1

REPORT INFORMATION
  Report Type: 
  Country: None (occurrence: None)
  Receive Date: 20070312
  Receipt Date: 20070305
  Transmission Date: 20070707
  Serious: Yes (Death)
  Sender: FDA-Public Use
  Company Number: PHBS2007JP03332

PATIENT
  Age: 3 Year
  Sex: Male

DRUGS (2)
  1. CYCLOSPORINE [Suspect]
     Indication: CORD BLOOD TRANSPLANT THERAPY
     Route: 065
  2. METHOTREXATE [Concomitant]
     Indication: CORD BLOOD TRANSPLANT THERAPY
     Route: 065

REACTIONS (17)
  - BLOOD CULTURE POSITIVE [None]
  - C-REACTIVE PROTEIN INCREASED [None]
  - CEREBRAL VENTRICLE DILATATION [None]
  - CSF CELL COUNT INCREASED [None]
  - ENCEPHALITIS [None]
  - EPENDYMITIS [None]
  - HYDROCEPHALUS [None]
  - MENINGITIS [None]
  - NUCHAL RIGIDITY [None]
  - NUCLEAR MAGNETIC RESONANCE IMAGING BRAIN ABNORMAL [None]
  - PUPILLARY REFLEX IMPAIRED [None]
  - PYREXIA [None]
  - RASH [None]
  - RESPIRATORY ARREST [None]
  - STAPHYLOCOCCAL SEPSIS [None]
  - STRABISMUS [None]
  - WHITE BLOOD CELL COUNT INCREASED [None]
